FAERS Safety Report 10855324 (Version 1)
Quarter: 2015Q1

REPORT INFORMATION
  Report Type: Spontaneous
  Country: US (occurrence: None)
  Receive Date: 20150218
  Receipt Date: 20150218
  Transmission Date: 20150721
  Serious: Yes (Disabling)
  Sender: FDA-Public Use
  Company Number: None

PATIENT
  Age: 35 Year
  Sex: Female
  Weight: 61.24 kg

DRUGS (5)
  1. PHENERGAN [Suspect]
     Active Substance: PROMETHAZINE HYDROCHLORIDE
     Indication: MIGRAINE
     Dosage: ONE INJECTION DURING ER APPT INTO THE MUSCLE
     Route: 030
     Dates: start: 20141118, end: 20141118
  2. PHENERGAN [Suspect]
     Active Substance: PROMETHAZINE HYDROCHLORIDE
     Indication: VERTIGO
     Dosage: ONE INJECTION DURING ER APPT INTO THE MUSCLE
     Route: 030
     Dates: start: 20141118, end: 20141118
  3. PHENERGAN [Suspect]
     Active Substance: PROMETHAZINE HYDROCHLORIDE
     Indication: NECK PAIN
     Dosage: ONE INJECTION DURING ER APPT INTO THE MUSCLE
     Route: 030
     Dates: start: 20141118, end: 20141118
  4. PHENERGAN [Suspect]
     Active Substance: PROMETHAZINE HYDROCHLORIDE
     Indication: PHOTOSENSITIVITY REACTION
     Dosage: ONE INJECTION DURING ER APPT INTO THE MUSCLE
     Route: 030
     Dates: start: 20141118, end: 20141118
  5. PHENERGAN [Suspect]
     Active Substance: PROMETHAZINE HYDROCHLORIDE
     Indication: NAUSEA
     Dosage: ONE INJECTION DURING ER APPT INTO THE MUSCLE
     Route: 030
     Dates: start: 20141118, end: 20141118

REACTIONS (4)
  - Injection site bruising [None]
  - Bacterial infection [None]
  - Wrong technique in drug usage process [None]
  - Product quality issue [None]

NARRATIVE: CASE EVENT DATE: 20141118
